FAERS Safety Report 9445826 (Version 1)
Quarter: 2013Q3

REPORT INFORMATION
  Report Type: Spontaneous
  Country: US (occurrence: US)
  Receive Date: 20130807
  Receipt Date: 20130807
  Transmission Date: 20140515
  Serious: Yes (Other)
  Sender: FDA-Public Use
  Company Number: US-BRISTOL-MYERS SQUIBB COMPANY-19143437

PATIENT
  Age: 72 Year
  Sex: Male
  Weight: 80.72 kg

DRUGS (9)
  1. BYETTA [Suspect]
     Indication: TYPE 2 DIABETES MELLITUS
     Dosage: 2ND INJECTION ON 18JUL13
     Dates: start: 20130717, end: 20130719
  2. METFORMIN [Concomitant]
  3. GLYBURIDE [Concomitant]
  4. CARDIZEM [Concomitant]
  5. MEVACOR [Concomitant]
  6. LISINOPRIL [Concomitant]
  7. ECONAZOLE NITRATE [Concomitant]
  8. PLAVIX [Concomitant]
  9. ASPIRIN [Concomitant]

REACTIONS (1)
  - Chest pain [Recovering/Resolving]
